FAERS Safety Report 7855161-9 (Version None)
Quarter: 2011Q4

REPORT INFORMATION
  Report Type: 
  Country: None (occurrence: None)
  Receive Date: 20111026
  Receipt Date: 20111011
  Transmission Date: 20120403
  Serious: Yes (Hospitalization)
  Sender: FDA-Public Use
  Company Number: IT-WATSON-2011-16967

PATIENT
  Age: 10 Year
  Sex: Female

DRUGS (1)
  1. BACLOFEN [Suspect]
     Indication: MUSCLE SPASTICITY
     Dosage: 2 MG/KG/DAY
     Route: 048

REACTIONS (8)
  - INSOMNIA [None]
  - CONFUSIONAL STATE [None]
  - DRUG EFFECT DECREASED [None]
  - HYPOTONIA [None]
  - MUSCLE SPASTICITY [None]
  - HYPOREFLEXIA [None]
  - ELECTROENCEPHALOGRAM ABNORMAL [None]
  - AGITATION [None]
